FAERS Safety Report 15600891 (Version 3)
Quarter: 2019Q4

REPORT INFORMATION
  Report Type: Report from Study
  Country: FR (occurrence: FR)
  Receive Date: 20181109
  Receipt Date: 20191203
  Transmission Date: 20200122
  Serious: Yes (Other)
  Sender: FDA-Public Use
  Company Number: FR-TEVA-2018-FR-973945

PATIENT
  Age: 75 Year
  Sex: Female

DRUGS (1)
  1. ENALAPRIL [Suspect]
     Active Substance: ENALAPRIL
     Dosage: INTRODUCED SEVERAL YEARS BEFORE
     Route: 065

REACTIONS (2)
  - Angioedema [Unknown]
  - Acquired C1 inhibitor deficiency [Unknown]
